FAERS Safety Report 20539059 (Version 1)
Quarter: 2022Q1

REPORT INFORMATION
  Report Type: Spontaneous
  Country: US (occurrence: US)
  Receive Date: 20220302
  Receipt Date: 20220302
  Transmission Date: 20220423
  Serious: Yes (Hospitalization)
  Sender: FDA-Public Use
  Company Number: US-JNJFOC-20210933937

PATIENT
  Sex: Female

DRUGS (5)
  1. EDURANT [Suspect]
     Active Substance: RILPIVIRINE HYDROCHLORIDE
     Indication: Product used for unknown indication
     Route: 048
     Dates: start: 20210806, end: 20210827
  2. CABOTEGRAVIR [Suspect]
     Active Substance: CABOTEGRAVIR
     Indication: Product used for unknown indication
     Route: 048
     Dates: start: 20210806, end: 20210827
  3. GENVOYA [Concomitant]
     Active Substance: COBICISTAT\ELVITEGRAVIR\EMTRICITABINE\TENOFOVIR ALAFENAMIDE FUMARATE
     Indication: Product used for unknown indication
  4. ISENTRESS [Concomitant]
     Active Substance: RALTEGRAVIR POTASSIUM
     Indication: Product used for unknown indication
  5. TRUVADA [Concomitant]
     Active Substance: EMTRICITABINE\TENOFOVIR DISOPROXIL FUMARATE
     Indication: Product used for unknown indication

REACTIONS (13)
  - Periorbital oedema [Unknown]
  - Speech disorder [Unknown]
  - Dysphagia [Unknown]
  - Hypophagia [Unknown]
  - Lip swelling [Unknown]
  - Tongue ulceration [Unknown]
  - Tongue blistering [Unknown]
  - Mouth ulceration [Not Recovered/Not Resolved]
  - Chills [Not Recovered/Not Resolved]
  - Ocular hyperaemia [Not Recovered/Not Resolved]
  - Oral pain [Recovered/Resolved]
  - Rash [Recovered/Resolved]
  - Vaginal lesion [Unknown]

NARRATIVE: CASE EVENT DATE: 20210820
